FAERS Safety Report 14586696 (Version 1)
Quarter: 2018Q1

REPORT INFORMATION
  Report Type: Other
  Country: DE (occurrence: DE)
  Receive Date: 20180301
  Receipt Date: 20180301
  Transmission Date: 20180509
  Serious: Yes (Hospitalization)
  Sender: FDA-Public Use
  Company Number: DE-GLENMARK PHARMACEUTICALS-2018GMK032602

PATIENT

DRUGS (15)
  1. METAMIZOL                          /06276702/ [Suspect]
     Active Substance: METAMIZOLE
     Indication: POST HERPETIC NEURALGIA
     Dosage: 1500 MG, UNK, EVERY 2 DAY
     Route: 048
     Dates: start: 20170717, end: 20170811
  2. TILIDIN [Suspect]
     Active Substance: NALOXONE HYDROCHLORIDE\TILIDINE HYDROCHLORIDE
     Indication: POST HERPETIC NEURALGIA
     Dosage: 1 DF, QD
     Route: 048
     Dates: start: 20170724, end: 20170811
  3. FOLSAEURE [Concomitant]
     Active Substance: FOLIC ACID
     Indication: PRODUCT USED FOR UNKNOWN INDICATION
     Dosage: DAILY DOSE: 1 DF DOSAGE FORM EVERY 3 DAY
     Route: 048
  4. ACICLOVIR [Suspect]
     Active Substance: ACYCLOVIR
     Indication: HERPES ZOSTER
     Dosage: 4000 MG, QD
     Route: 048
     Dates: start: 20170704, end: 20170711
  5. SALBUTAMOL [Concomitant]
     Active Substance: ALBUTEROL
     Indication: PRODUCT USED FOR UNKNOWN INDICATION
     Dosage: DAILY DOSE: 0.36 MG MILLIGRAM(S) EVERY 2 DAY
     Route: 055
  6. RAMIPRIL. [Concomitant]
     Active Substance: RAMIPRIL
     Indication: PRODUCT USED FOR UNKNOWN INDICATION
     Dosage: DAILY DOSE: 5 MG MILLIGRAM(S) EVERY DAY
     Route: 048
  7. METAMIZOL                          /06276702/ [Concomitant]
     Active Substance: METAMIZOLE
     Indication: PRODUCT USED FOR UNKNOWN INDICATION
     Dosage: DAILY DOSE: 3 G GRAM(S) EVERY DAY
     Route: 048
     Dates: start: 20170811
  8. ZOPICLON [Suspect]
     Active Substance: ZOPICLONE
     Indication: PRODUCT USED FOR UNKNOWN INDICATION
     Dosage: DAILY DOSE: 3.75 MG MILLIGRAM(S) EVERY DAY
     Route: 048
  9. VITAMIN B12 [Concomitant]
     Active Substance: CYANOCOBALAMIN
     Indication: PRODUCT USED FOR UNKNOWN INDICATION
     Dosage: DAILY DOSE: 1 DF DOSAGE FORM EVERY 3 DAY
     Route: 048
  10. PANTOPRAZOL [Suspect]
     Active Substance: PANTOPRAZOLE SODIUM
     Indication: PRODUCT USED FOR UNKNOWN INDICATION
     Dosage: DAILY DOSE: 40 MG MILLIGRAM(S) EVERY DAY
     Route: 048
  11. ASPIRIN. [Concomitant]
     Active Substance: ASPIRIN
     Indication: PRODUCT USED FOR UNKNOWN INDICATION
     Dosage: DAILY DOSE: 100 MG MILLIGRAM(S) EVERY DAY
     Route: 048
  12. VITAMIN B6 [Concomitant]
     Active Substance: PYRIDOXINE HYDROCHLORIDE
     Indication: PRODUCT USED FOR UNKNOWN INDICATION
     Dosage: DAILY DOSE: 1 DF DOSAGE FORM EVERY 3 DAY
     Route: 048
  13. COLECALCIFEROL [Concomitant]
     Active Substance: CHOLECALCIFEROL
     Indication: PRODUCT USED FOR UNKNOWN INDICATION
     Dosage: DAILY DOSE: 1 IU INTERNATIONAL UNIT(S) EVERY WEEK
     Route: 065
  14. VARDENAFIL [Concomitant]
     Active Substance: VARDENAFIL
     Indication: PRODUCT USED FOR UNKNOWN INDICATION
     Dosage: B. BEDARF
     Route: 048
  15. PREGABALIN. [Suspect]
     Active Substance: PREGABALIN
     Indication: TRANSAMINASES INCREASED
     Dosage: 100 MG, QD
     Route: 048

REACTIONS (7)
  - Transaminases increased [Recovering/Resolving]
  - Hepatic enzyme increased [Recovering/Resolving]
  - Food interaction [Recovering/Resolving]
  - Hepatic cyst [Recovering/Resolving]
  - Cholelithiasis [Recovering/Resolving]
  - Cholestasis [Recovering/Resolving]
  - Accessory spleen [Recovering/Resolving]

NARRATIVE: CASE EVENT DATE: 20170801
